FAERS Safety Report 6963372-X (Version None)
Quarter: 2010Q3

REPORT INFORMATION
  Report Type: 
  Country: None (occurrence: None)
  Receive Date: 20100902
  Receipt Date: 20100827
  Transmission Date: 20110219
  Serious: Yes (Hospitalization)
  Sender: FDA-Public Use
  Company Number: A0871169A

PATIENT
  Age: 75 Year
  Sex: Male

DRUGS (13)
  1. AVANDIA [Suspect]
     Dosage: 4MG PER DAY
     Route: 048
     Dates: start: 20080101, end: 20100701
  2. ALLOPURINOL [Concomitant]
  3. VYTORIN [Concomitant]
  4. COUMADIN [Concomitant]
  5. DOCUSATE SODIUM [Concomitant]
  6. POLYETHYLENE GLYCOL [Concomitant]
  7. MILK OF MAGNESIA TAB [Concomitant]
  8. LUBIPROSTONE [Concomitant]
  9. MELOXICAM [Concomitant]
  10. SINGULAIR [Concomitant]
  11. PREDNISONE [Concomitant]
  12. NYSTATIN [Concomitant]
  13. ASPIRIN [Concomitant]

REACTIONS (7)
  - ARTHRALGIA [None]
  - BACK PAIN [None]
  - CEREBROVASCULAR ACCIDENT [None]
  - CONFUSIONAL STATE [None]
  - DIZZINESS [None]
  - HYPOAESTHESIA [None]
  - INTERVERTEBRAL DISC OPERATION [None]
